FAERS Safety Report 16662635 (Version 1)
Quarter: 2019Q3

REPORT INFORMATION
  Report Type: Report from Study
  Country: US (occurrence: US)
  Receive Date: 20190802
  Receipt Date: 20190802
  Transmission Date: 20191004
  Serious: No
  Sender: FDA-Public Use
  Company Number: US-EXELIXIS-CABO-19018752

PATIENT
  Sex: Male

DRUGS (1)
  1. CABOMETYX [Suspect]
     Active Substance: CABOZANTINIB S-MALATE
     Indication: OSTEOSARCOMA
     Dosage: 60 MG, QD (WITHOUT FOOD)
     Dates: start: 201812

REACTIONS (5)
  - Off label use [Unknown]
  - Skin discolouration [Unknown]
  - Hypertension [Recovered/Resolved]
  - Bed bug infestation [Recovered/Resolved]
  - Rash [Unknown]
